FAERS Safety Report 19926172 (Version 1)
Quarter: 2021Q4

REPORT INFORMATION
  Report Type: Spontaneous
  Country: US (occurrence: US)
  Receive Date: 20211006
  Receipt Date: 20211006
  Transmission Date: 20220303
  Serious: No
  Sender: FDA-Public Use
  Company Number: US-MYLANLABS-2021M1064184

PATIENT
  Sex: Female

DRUGS (4)
  1. ESTRADIOL [Suspect]
     Active Substance: ESTRADIOL
     Indication: Product used for unknown indication
     Dosage: 0.01 PERCENT (IS 2TO4 G DAILY FOR ONE OR TWO WEEKS)
     Route: 067
  2. ESTRADIOL [Suspect]
     Active Substance: ESTRADIOL
     Dosage: UNK
  3. ESTRADIOL [Suspect]
     Active Substance: ESTRADIOL
     Dosage: UNK
  4. ESTRADIOL [Suspect]
     Active Substance: ESTRADIOL
     Dosage: UNK

REACTIONS (3)
  - Product storage error [Recovered/Resolved]
  - Product odour abnormal [Not Recovered/Not Resolved]
  - Product solubility abnormal [Not Recovered/Not Resolved]
